FAERS Safety Report 6902548-4 (Version None)
Quarter: 2010Q3

REPORT INFORMATION
  Report Type: 
  Country: None (occurrence: None)
  Receive Date: 20100730
  Receipt Date: 20100720
  Transmission Date: 20110219
  Serious: Yes (Hospitalization)
  Sender: FDA-Public Use
  Company Number: VISP-PR-1007L-0369

PATIENT
  Age: 35 Year
  Sex: Male

DRUGS (1)
  1. VISIPAQUE [Suspect]
     Indication: ARTERIOVENOUS FISTULA THROMBOSIS
     Dosage: SINGLE DOSE

REACTIONS (1)
  - PANCREATITIS ACUTE [None]
